FAERS Safety Report 7361667-1 (Version None)
Quarter: 2011Q1

REPORT INFORMATION
  Report Type: 
  Country: None (occurrence: None)
  Receive Date: 20110318
  Receipt Date: 20110311
  Transmission Date: 20110831
  Serious: Yes (Hospitalization, Other)
  Sender: FDA-Public Use
  Company Number: US-PFIZER INC-2006031721

PATIENT
  Sex: Male

DRUGS (9)
  1. TEGRETOL [Concomitant]
     Dosage: UNK
  2. EFFEXOR [Concomitant]
     Dosage: 75 MG, UNK
  3. LIDODERM [Concomitant]
     Dosage: UNK
     Route: 062
  4. ROBAXIN [Concomitant]
     Dosage: 750 MG, UNK
  5. XANAX [Concomitant]
     Dosage: UNK
  6. DURAGESIC-50 [Concomitant]
     Dosage: UNK
     Route: 062
  7. NEURONTIN [Suspect]
     Dosage: 300 MG, 3X/DAY
     Dates: start: 20021111
  8. EFFEXOR [Concomitant]
     Dosage: 37.5 MG, UNK
  9. NEURONTIN [Suspect]
     Dosage: 300 MG, 3X/DAY
     Route: 065
     Dates: start: 20021224, end: 20030203

REACTIONS (6)
  - DEMENTIA ALZHEIMER'S TYPE [None]
  - MAJOR DEPRESSION [None]
  - DRUG DEPENDENCE [None]
  - SUICIDE ATTEMPT [None]
  - CONFUSIONAL STATE [None]
  - SUICIDAL IDEATION [None]
